FAERS Safety Report 7893543-X (Version None)
Quarter: 2011Q4

REPORT INFORMATION
  Report Type: 
  Country: None (occurrence: None)
  Receive Date: 20111104
  Receipt Date: 20111101
  Transmission Date: 20120403
  Serious: Yes (Hospitalization)
  Sender: FDA-Public Use
  Company Number: GB-MERCK-1111GBR00004

PATIENT
  Age: 83 Year
  Sex: Male

DRUGS (4)
  1. MADOPAR [Suspect]
     Indication: PARKINSON'S DISEASE
     Route: 048
  2. SINEMET [Suspect]
     Indication: PARKINSON'S DISEASE
     Route: 048
  3. PREGABALIN [Concomitant]
     Route: 065
  4. NICORANDIL [Concomitant]
     Route: 065

REACTIONS (4)
  - COLD SWEAT [None]
  - ORTHOSTATIC HYPOTENSION [None]
  - PALLOR [None]
  - SYNCOPE [None]
